FAERS Safety Report 4743683-9 (Version None)
Quarter: 2005Q3

REPORT INFORMATION
  Report Type: 
  Country: None (occurrence: None)
  Receive Date: 20050812
  Receipt Date: 20050803
  Transmission Date: 20060218
  Serious: Yes (Other)
  Sender: FDA-Public Use
  Company Number: 200512647FR

PATIENT
  Age: 26 Year
  Sex: Female

DRUGS (4)
  1. RIFADIN [Suspect]
     Route: 065
  2. RIMIFON [Suspect]
     Route: 065
  3. MYAMBUTOL [Suspect]
     Route: 065
  4. IMUREL [Suspect]
     Route: 065
     Dates: end: 20040501

REACTIONS (3)
  - ABORTION SPONTANEOUS [None]
  - ALPHA 1 FOETOPROTEIN INCREASED [None]
  - TRANSMISSION OF DRUG VIA SEMEN [None]
